FAERS Safety Report 10677649 (Version 2)
Quarter: 2015Q1

REPORT INFORMATION
  Report Type: Report from Study
  Country: US (occurrence: US)
  Receive Date: 20141229
  Receipt Date: 20150109
  Transmission Date: 20150720
  Serious: Yes (Other)
  Sender: FDA-Public Use
  Company Number: US-AMGEN INC.-USASL2014100511

PATIENT
  Age: 31 Year
  Sex: Male
  Weight: 99.77 kg

DRUGS (1)
  1. ENBREL [Suspect]
     Active Substance: ETANERCEPT
     Indication: PRODUCT USED FOR UNKNOWN INDICATION
     Dosage: 50 MG, QWK
     Route: 058

REACTIONS (3)
  - Oropharyngeal pain [Recovering/Resolving]
  - Uveitis [Recovering/Resolving]
  - Body temperature abnormal [Recovering/Resolving]

NARRATIVE: CASE EVENT DATE: 20141220
